FAERS Safety Report 4979325-7 (Version None)
Quarter: 2006Q2

REPORT INFORMATION
  Report Type: 
  Country: None (occurrence: None)
  Receive Date: 20060421
  Receipt Date: 20051207
  Transmission Date: 20061013
  Serious: Yes (Other)
  Sender: FDA-Public Use
  Company Number: US-MERCK-0512USA01429

PATIENT
  Age: 46 Year
  Sex: Male
  Weight: 95 kg

DRUGS (5)
  1. VIOXX [Suspect]
     Indication: LIMB INJURY
     Route: 048
     Dates: start: 20020522, end: 20040501
  2. VIOXX [Suspect]
     Indication: ARTHRALGIA
     Route: 048
     Dates: start: 20020522, end: 20040501
  3. CRESTOR [Concomitant]
     Route: 065
  4. TYLENOL (CAPLET) [Concomitant]
     Route: 065
  5. IBUPROFEN [Concomitant]
     Route: 065

REACTIONS (15)
  - ARTERIAL OCCLUSIVE DISEASE [None]
  - CARDIAC DISORDER [None]
  - CHEST DISCOMFORT [None]
  - CORONARY ARTERY DISEASE [None]
  - DIZZINESS [None]
  - FATIGUE [None]
  - JOINT INJURY [None]
  - LETHARGY [None]
  - MALAISE [None]
  - MUSCULOSKELETAL DISCOMFORT [None]
  - MYALGIA [None]
  - MYOCARDIAL INFARCTION [None]
  - PAIN [None]
  - PAIN IN EXTREMITY [None]
  - REFLUX OESOPHAGITIS [None]
